FAERS Safety Report 5490059-5 (Version None)
Quarter: 2007Q4

REPORT INFORMATION
  Report Type: 
  Country: None (occurrence: None)
  Receive Date: 20071018
  Receipt Date: 20070815
  Transmission Date: 20080405
  Serious: Yes (Death)
  Sender: FDA-Public Use
  Company Number: GB-ELI_LILLY_AND_COMPANY-GB200710003425

PATIENT
  Sex: Female

DRUGS (9)
  1. CYMBALTA [Suspect]
     Indication: SCHIZOPHRENIA
     Dosage: 30 MG, UNKNOWN
     Route: 065
     Dates: start: 20070101
  2. AMITRIPTYLINE HCL [Concomitant]
     Indication: PAIN
     Dosage: 20 MG, UNKNOWN
     Route: 065
  3. AMITRIPTYLINE HCL [Concomitant]
     Dosage: 10 MG, UNKNOWN
     Route: 065
  4. DEPIXOL [Concomitant]
     Dosage: 50 MG, WEEKLY (1/W)
     Route: 030
  5. DIAZEPAM [Concomitant]
     Dosage: 5 MG, UNKNOWN
     Route: 065
  6. ANADIN [Concomitant]
     Dosage: 6-8 TABLETS, DAILY (1/D)
     Route: 065
  7. QUETIAPINE FUMARATE [Concomitant]
     Dosage: 25 MG, EACH EVENING
     Route: 065
  8. LATANOPROST [Concomitant]
     Indication: GLAUCOMA
     Dosage: UNK, UNKNOWN
     Route: 065
  9. GABAPENTIN [Concomitant]
     Dosage: UNK, UNKNOWN
     Route: 065

REACTIONS (1)
  - DEATH [None]
